FAERS Safety Report 6103100-3 (Version None)
Quarter: 2009Q1

REPORT INFORMATION
  Report Type: 
  Country: None (occurrence: None)
  Receive Date: 20090305
  Receipt Date: 20090302
  Transmission Date: 20090719
  Serious: Yes (Other)
  Sender: FDA-Public Use
  Company Number: JP-BRISTOL-MYERS SQUIBB COMPANY-14527121

PATIENT
  Age: 18 Year
  Sex: Female

DRUGS (4)
  1. DESYREL [Suspect]
     Indication: INSOMNIA
     Route: 048
     Dates: start: 20090109, end: 20090109
  2. MYSLEE [Suspect]
     Indication: INSOMNIA
     Route: 048
     Dates: start: 20090109, end: 20090109
  3. ETHYL LOFLAZEPATE [Suspect]
     Indication: SLEEP DISORDER
     Dates: start: 20090109, end: 20090109
  4. ETHYL LOFLAZEPATE [Suspect]
     Indication: INSOMNIA
     Dates: start: 20090109, end: 20090109

REACTIONS (1)
  - ANAPHYLACTIC SHOCK [None]
